FAERS Safety Report 6742607-2 (Version None)
Quarter: 2010Q2

REPORT INFORMATION
  Report Type: 
  Country: None (occurrence: None)
  Receive Date: 20100524
  Receipt Date: 20100412
  Transmission Date: 20101027
  Serious: No
  Sender: FDA-Public Use
  Company Number: ACO_00698_2010

PATIENT
  Sex: Male
  Weight: 108.8633 kg

DRUGS (2)
  1. AMPYRA [Suspect]
     Indication: MULTIPLE SCLEROSIS
     Dosage: (10 MG BID ORAL)
     Route: 048
     Dates: start: 20100406
  2. COPAXONE [Concomitant]

REACTIONS (3)
  - ARTHRALGIA [None]
  - FEELING HOT [None]
  - JOINT SWELLING [None]
